FAERS Safety Report 16222691 (Version 1)
Quarter: 2019Q2

REPORT INFORMATION
  Report Type: Spontaneous
  Country: US (occurrence: US)
  Receive Date: 20190419
  Receipt Date: 20190419
  Transmission Date: 20190711
  Serious: Yes (Hospitalization)
  Sender: FDA-Public Use
  Company Number: None

PATIENT
  Age: 39 Year
  Sex: Female

DRUGS (8)
  1. OMEPRAZOLE CAP 40MG [Concomitant]
     Active Substance: OMEPRAZOLE
  2. RANITIDINE TAB 150MG [Concomitant]
  3. NITROFURANTN CAP 100MG [Concomitant]
  4. SYNTHROID TAB 112MCG [Concomitant]
  5. HYDROXYCHLOR TAB 200MG [Concomitant]
     Active Substance: HYDROXYCHLOROQUINE
  6. AMOXICILLIN TAB 875MG [Concomitant]
  7. CHLORHEX GLU SOL 0.12% [Concomitant]
  8. HUMIRA [Suspect]
     Active Substance: ADALIMUMAB
     Indication: ARTHROPATHY
     Dosage: ?          OTHER FREQUENCY:EVERY 2 WEEKS;?
     Route: 058
     Dates: start: 20181107

REACTIONS (1)
  - Sepsis [None]

NARRATIVE: CASE EVENT DATE: 20190226
